FAERS Safety Report 6595653-6 (Version None)
Quarter: 2010Q1

REPORT INFORMATION
  Report Type: 
  Country: None (occurrence: None)
  Receive Date: 20100222
  Receipt Date: 20100222
  Transmission Date: 20100710
  Serious: Yes (Disabling)
  Sender: FDA-Public Use
  Company Number: None

PATIENT
  Sex: Female
  Weight: 68.0396 kg

DRUGS (1)
  1. TRI-LUMA GALDERMA [Suspect]
     Indication: SCAR
     Dosage: 1 X PER DAY 30MINS BEFORE BED TOP
     Route: 061
     Dates: start: 20091106, end: 20091203

REACTIONS (3)
  - CONDITION AGGRAVATED [None]
  - DRUG HYPERSENSITIVITY [None]
  - SCAR [None]
